FAERS Safety Report 7634696-8 (Version None)
Quarter: 2011Q3

REPORT INFORMATION
  Report Type: 
  Country: None (occurrence: None)
  Receive Date: 20110725
  Receipt Date: 20081115
  Transmission Date: 20111222
  Serious: Yes (Other)
  Sender: FDA-Public Use
  Company Number: US-BAYER-200838759NA

PATIENT
  Age: 70 Year
  Sex: Female
  Weight: 63 kg

DRUGS (21)
  1. LOVENOX [Concomitant]
     Dosage: 60 MG, TID
     Route: 058
     Dates: start: 20061223
  2. PHENYLEPHRINE HCL [Concomitant]
     Dosage: 200 MCG
     Route: 042
  3. METOPROLOL TARTRATE [Concomitant]
     Dosage: 50 MG, TID
     Route: 048
  4. CHROMAGEN [CYANOCOBALAMIN,LIDOCAINE HYDROCHLORIDE,PEPTONIZED IRON] [Concomitant]
     Dosage: 2 TABS/ONCE DAILY
     Route: 048
  5. FRESH FROZEN PLASMA [Concomitant]
     Dosage: 2 U, ONCE
     Route: 042
     Dates: start: 20061229
  6. PROTONIX [Concomitant]
     Dosage: 40 MG/24HR, UNK
     Route: 048
  7. HEPARIN [Concomitant]
     Dosage: 10000 U, UNK
     Route: 042
  8. VERSED [Concomitant]
     Dosage: 2 TO 4MG
     Route: 042
     Dates: start: 20061229
  9. GLUCOTROL [Concomitant]
     Dosage: 5 MG/24HR, UNK
     Route: 048
  10. ZYLOPRIM [Concomitant]
     Dosage: 100 MG/24HR, UNK
     Route: 048
  11. COUMADIN [Concomitant]
     Dosage: 5/7.5MG/WITH SUPPER
     Route: 048
     Dates: end: 20061223
  12. TRASYLOL [Suspect]
     Indication: AORTIC VALVE REPLACEMENT
     Dosage: 100 ML, BOLUS
     Route: 042
     Dates: start: 20061229, end: 20061229
  13. BUMEX [Concomitant]
     Dosage: 2 MG, TID
     Route: 048
  14. NATRECOR [Concomitant]
     Route: 042
  15. CARAFATE [Concomitant]
     Dosage: 1 G, BEFORE MEALS AND BEDTIME
     Route: 048
     Dates: start: 20061227
  16. PROTAMINE SULFATE [Concomitant]
     Dosage: 20 TO 50MG
     Route: 042
  17. LEVOPHED [Concomitant]
     Dosage: 0.05 TO 0.2 MCG/KG/MIN
     Route: 042
  18. MILRINONE [Concomitant]
     Dosage: 0.375 MCG/KG/MIN
     Route: 042
  19. ANCEF [Concomitant]
     Route: 042
  20. RED BLOOD CELLS [Concomitant]
     Dosage: 3 U, ONCE
     Route: 042
     Dates: start: 20061229
  21. PLATELETS [Concomitant]
     Dosage: UNK
     Route: 042
     Dates: start: 20061229

REACTIONS (4)
  - RENAL FAILURE [None]
  - INJURY [None]
  - PAIN [None]
  - UNEVALUABLE EVENT [None]
